FAERS Safety Report 16336257 (Version 1)
Quarter: 2019Q2

REPORT INFORMATION
  Report Type: Spontaneous
  Country: CH (occurrence: CH)
  Receive Date: 20190521
  Receipt Date: 20190521
  Transmission Date: 20190711
  Serious: Yes (Other)
  Sender: FDA-Public Use
  Company Number: CH-TEVA-2019-CH-1050177

PATIENT
  Age: 77 Year
  Sex: Female

DRUGS (7)
  1. FLUOXETINE [Suspect]
     Active Substance: FLUOXETINE HYDROCHLORIDE
     Route: 065
  2. TEBOKAN [Suspect]
     Active Substance: GINKGO
     Route: 065
  3. SEROQUEL [Concomitant]
     Active Substance: QUETIAPINE FUMARATE
  4. MARCOUMAR [Suspect]
     Active Substance: PHENPROCOUMON
     Indication: THROMBOSIS
     Route: 065
  5. CONDROSULF [Concomitant]
     Active Substance: SODIUM CHONDROITIN SULFATE
  6. TRITTICO [Concomitant]
     Active Substance: TRAZODONE HYDROCHLORIDE
  7. LITHIOFOR [Concomitant]
     Active Substance: LITHIUM SULFATE

REACTIONS (1)
  - Subdural haematoma [Recovering/Resolving]

NARRATIVE: CASE EVENT DATE: 20180917
